FAERS Safety Report 17664552 (Version 1)
Quarter: 2020Q2

REPORT INFORMATION
  Report Type: Spontaneous
  Country: GB (occurrence: GB)
  Receive Date: 20200414
  Receipt Date: 20200414
  Transmission Date: 20200713
  Serious: Yes (Other)
  Sender: FDA-Public Use
  Company Number: GB-ACCORD-178640

PATIENT
  Age: 36 Year
  Sex: Male
  Weight: 70 kg

DRUGS (4)
  1. KEPPRA [Suspect]
     Active Substance: LEVETIRACETAM
     Dates: start: 20200317
  2. RIVAROXABAN [Concomitant]
     Active Substance: RIVAROXABAN
     Dosage: WITH FOOD.
     Dates: start: 20200219
  3. LEVETIRACETAM ACCORD HEALTHCARE [Suspect]
     Active Substance: LEVETIRACETAM
     Indication: PRODUCT USED FOR UNKNOWN INDICATION
     Dosage: PLEASE ISSUE MIL...
     Dates: start: 20200219
  4. DOXYCYCLINE. [Concomitant]
     Active Substance: DOXYCYCLINE
     Dates: start: 20200128, end: 20200204

REACTIONS (1)
  - Hypoaesthesia [Unknown]

NARRATIVE: CASE EVENT DATE: 20200317
